FAERS Safety Report 7994169-X (Version None)
Quarter: 2011Q4

REPORT INFORMATION
  Report Type: 
  Country: None (occurrence: None)
  Receive Date: 20111220
  Receipt Date: 20111208
  Transmission Date: 20120403
  Serious: Yes (Other)
  Sender: FDA-Public Use
  Company Number: CA-JNJFOC-20111206934

PATIENT
  Sex: Female
  Weight: 69.85 kg

DRUGS (1)
  1. REMICADE [Suspect]
     Indication: CROHN'S DISEASE
     Route: 042
     Dates: start: 20100101

REACTIONS (4)
  - BLOOD IRON DECREASED [None]
  - HAEMORRHAGE [None]
  - CROHN'S DISEASE [None]
  - SOMNOLENCE [None]
